FAERS Safety Report 8515840-7 (Version None)
Quarter: 2012Q3

REPORT INFORMATION
  Report Type: 
  Country: None (occurrence: None)
  Receive Date: 20120717
  Receipt Date: 20120713
  Transmission Date: 20120928
  Serious: Yes (Hospitalization, Other)
  Sender: FDA-Public Use
  Company Number: FR-PFIZER INC-2012168614

PATIENT
  Age: 17 Year
  Sex: Male

DRUGS (3)
  1. ADVIL [Suspect]
     Indication: DIARRHOEA
     Dosage: 400 MG, SINGLE
     Route: 048
     Dates: start: 20120514, end: 20120514
  2. ADVIL [Suspect]
     Indication: SPINAL PAIN
  3. ADVIL [Suspect]
     Indication: ABDOMINAL PAIN
     Dosage: 400 MG, SINGLE
     Route: 048
     Dates: start: 20120511, end: 20120511

REACTIONS (5)
  - ASTHENIA [None]
  - RENAL TUBULAR DISORDER [None]
  - RENAL FAILURE ACUTE [None]
  - VOMITING [None]
  - GENERAL PHYSICAL HEALTH DETERIORATION [None]
